FAERS Safety Report 6233647-0 (Version None)
Quarter: 2009Q2

REPORT INFORMATION
  Report Type: 
  Country: None (occurrence: None)
  Receive Date: 20090612
  Receipt Date: 20090529
  Transmission Date: 20091009
  Serious: Yes (Hospitalization)
  Sender: FDA-Public Use
  Company Number: DSA_33756_2009

PATIENT
  Age: 76 Year
  Sex: Female

DRUGS (5)
  1. ENALAPRIL MALEATE W/ HYDROCHLOROTIAZIDE (ENALAPRIL) [Suspect]
     Indication: HYPERTENSION
     Dosage: 20-6 MG  ORAL
     Route: 048
     Dates: start: 20090201, end: 20090320
  2. ENALAPRIL MALEATE W/ HYDROCHLOROTIAZIDE (ENALAPRIL) [Suspect]
     Indication: HYPERTENSION
     Dosage: 20-6 MG  ORAL
     Route: 048
     Dates: start: 20090325, end: 20090402
  3. AMLODIPINE BESYLATE [Concomitant]
  4. FLUVASTATIN SODIUM [Concomitant]
  5. OMEPRAZOLE [Concomitant]

REACTIONS (7)
  - ABDOMINAL PAIN [None]
  - CONTUSION [None]
  - DEPRESSED LEVEL OF CONSCIOUSNESS [None]
  - FALL [None]
  - HYPONATRAEMIA [None]
  - MALAISE [None]
  - WRONG DRUG ADMINISTERED [None]
